FAERS Safety Report 6979723-6 (Version None)
Quarter: 2010Q3

REPORT INFORMATION
  Report Type: 
  Country: None (occurrence: None)
  Receive Date: 20100913
  Receipt Date: 20100909
  Transmission Date: 20110219
  Serious: Yes (Life-Threatening)
  Sender: FDA-Public Use
  Company Number: HU-BRISTOL-MYERS SQUIBB COMPANY-15278914

PATIENT

DRUGS (2)
  1. ONGLYZA [Suspect]
  2. DINOPROSTONE [Suspect]

REACTIONS (1)
  - UTERINE CONTRACTIONS ABNORMAL [None]
